FAERS Safety Report 24349655 (Version 1)
Quarter: 2024Q3

REPORT INFORMATION
  Report Type: Spontaneous
  Country: CA (occurrence: CA)
  Receive Date: 20240923
  Receipt Date: 20240923
  Transmission Date: 20241017
  Serious: Yes (Disabling, Other)
  Sender: PHARMACOSMOS
  Company Number: None

PATIENT
  Age: 73 Year
  Sex: Female

DRUGS (1)
  1. MONOFERRIC [Suspect]
     Active Substance: FERRIC DERISOMALTOSE
     Indication: Serum ferritin decreased

REACTIONS (5)
  - Pain [Unknown]
  - Pain in extremity [Unknown]
  - Sleep disorder [Unknown]
  - Dizziness [Unknown]
  - Gait disturbance [Unknown]
